FAERS Safety Report 4491942-X (Version None)
Quarter: 2004Q4

REPORT INFORMATION
  Report Type: 
  Country: None (occurrence: None)
  Receive Date: 20041029
  Receipt Date: 20041029
  Transmission Date: 20050328
  Serious: Yes (Hospitalization)
  Sender: FDA-Public Use
  Company Number: None

PATIENT
  Sex: Male
  Weight: 104.7809 kg

DRUGS (18)
  1. TAXOTERE [Suspect]
     Indication: METASTASIS
     Dosage: 75 MG/M2
     Dates: start: 20030805
  2. TAXOTERE [Suspect]
     Indication: SYNOVIAL SARCOMA
     Dosage: 75 MG/M2
     Dates: start: 20030805
  3. TAXOTERE [Suspect]
     Indication: METASTASIS
     Dosage: 75 MG/M2
     Dates: start: 20030826
  4. TAXOTERE [Suspect]
     Indication: SYNOVIAL SARCOMA
     Dosage: 75 MG/M2
     Dates: start: 20030826
  5. TAXOTERE [Suspect]
     Indication: METASTASIS
     Dosage: 75 MG/M2
     Dates: start: 20030916
  6. TAXOTERE [Suspect]
     Indication: SYNOVIAL SARCOMA
     Dosage: 75 MG/M2
     Dates: start: 20030916
  7. TAXOTERE [Suspect]
     Indication: METASTASIS
     Dosage: 75 MG/M2
     Dates: start: 20031010
  8. TAXOTERE [Suspect]
     Indication: SYNOVIAL SARCOMA
     Dosage: 75 MG/M2
     Dates: start: 20031010
  9. TAXOTERE [Suspect]
     Indication: METASTASIS
     Dosage: 75 MG/M2
     Dates: start: 20031107
  10. TAXOTERE [Suspect]
     Indication: SYNOVIAL SARCOMA
     Dosage: 75 MG/M2
     Dates: start: 20031107
  11. TAXOTERE [Suspect]
     Indication: METASTASIS
     Dosage: 75 MG/M2
     Dates: start: 20031205
  12. TAXOTERE [Suspect]
     Indication: SYNOVIAL SARCOMA
     Dosage: 75 MG/M2
     Dates: start: 20031205
  13. TAXOTERE [Suspect]
     Indication: METASTASIS
     Dosage: 75 MG/M2
     Dates: start: 20031226
  14. TAXOTERE [Suspect]
     Indication: SYNOVIAL SARCOMA
     Dosage: 75 MG/M2
     Dates: start: 20031226
  15. TAXOTERE [Suspect]
     Indication: METASTASIS
     Dosage: 75 MG/M2
     Dates: start: 20040116
  16. TAXOTERE [Suspect]
     Indication: SYNOVIAL SARCOMA
     Dosage: 75 MG/M2
     Dates: start: 20040116
  17. IMATINIB 400 MG PO DAILY [Suspect]
     Dosage: 400 MG PO QD
     Route: 048
     Dates: start: 20030729, end: 20041025
  18. PEPCID [Concomitant]

REACTIONS (9)
  - ABDOMINAL PAIN [None]
  - COLITIS [None]
  - DIARRHOEA [None]
  - MALIGNANT NEOPLASM PROGRESSION [None]
  - MARKEDLY REDUCED DIETARY INTAKE [None]
  - METASTASIS [None]
  - NAUSEA [None]
  - SARCOMA [None]
  - VOMITING [None]
